FAERS Safety Report 11594741 (Version 3)
Quarter: 2015Q4

REPORT INFORMATION
  Report Type: Spontaneous
  Country: US (occurrence: US)
  Receive Date: 20151005
  Receipt Date: 20151005
  Transmission Date: 20160304
  Serious: No
  Sender: FDA-Public Use
  Company Number: US-TOLMAR INC.-1042593

PATIENT
  Age: 78 Year
  Sex: Female

DRUGS (3)
  1. PREMARIN VAGINAL [Concomitant]
     Active Substance: ESTROGENS, CONJUGATED
     Dates: start: 20141211
  2. FLUCONAZOLE. [Concomitant]
     Active Substance: FLUCONAZOLE
  3. METRONIDAZOLE. [Suspect]
     Active Substance: METRONIDAZOLE
     Indication: FUNGAL INFECTION
     Route: 061
     Dates: start: 20141221, end: 20141225

REACTIONS (5)
  - Fungal infection [Recovered/Resolved]
  - Vulvovaginal pain [Recovered/Resolved]
  - Pain [Recovering/Resolving]
  - Vulvovaginal burning sensation [Recovered/Resolved]
  - Feeling abnormal [Recovered/Resolved]

NARRATIVE: CASE EVENT DATE: 201412
